FAERS Safety Report 15963224 (Version 1)
Quarter: 2019Q1

REPORT INFORMATION
  Report Type: Spontaneous
  Country: US (occurrence: US)
  Receive Date: 20190214
  Receipt Date: 20190214
  Transmission Date: 20190417
  Serious: Yes (Disabling)
  Sender: FDA-Public Use
  Company Number: US-UPSHER-SMITH LABORATORIES, LLC-2019USL00080

PATIENT
  Sex: Female

DRUGS (2)
  1. BACLOFEN. [Suspect]
     Active Substance: BACLOFEN
     Dosage: 5 MG, 1X/DAY
     Dates: start: 201808, end: 201808
  2. BACLOFEN. [Suspect]
     Active Substance: BACLOFEN
     Dosage: 5 MG, 2X/DAY
     Dates: start: 201808, end: 201808

REACTIONS (5)
  - Paranoia [Unknown]
  - Fall [Unknown]
  - Somnolence [Unknown]
  - Confusional state [Unknown]
  - Hypersomnia [Unknown]

NARRATIVE: CASE EVENT DATE: 201808
